FAERS Safety Report 17540396 (Version 1)
Quarter: 2020Q1

REPORT INFORMATION
  Report Type: Spontaneous
  Country: JP (occurrence: JP)
  Receive Date: 20200313
  Receipt Date: 20200313
  Transmission Date: 20200409
  Serious: Yes (Other)
  Sender: FDA-Public Use
  Company Number: JP-PFIZER INC-2020109958

PATIENT
  Sex: Female

DRUGS (1)
  1. LIPITOR [Suspect]
     Active Substance: ATORVASTATIN CALCIUM
     Dosage: 5 MG, 1X/DAY
     Route: 048

REACTIONS (5)
  - Musculoskeletal stiffness [Unknown]
  - Myopathy [Unknown]
  - Dizziness [Unknown]
  - Epistaxis [Unknown]
  - Paralysis [Unknown]
